FAERS Safety Report 9915797 (Version 3)
Quarter: 2014Q2

REPORT INFORMATION
  Report Type: Spontaneous
  Country: DE (occurrence: None)
  Receive Date: 20140218
  Receipt Date: 20140403
  Transmission Date: 20141212
  Serious: Yes (Hospitalization)
  Sender: FDA-Public Use
  Company Number: 2014MPI00085

PATIENT
  Sex: Female

DRUGS (6)
  1. BRENTUXIMAB VEDOTIN [Suspect]
     Indication: HODGKIN^S DISEASE
     Route: 042
     Dates: start: 20130923, end: 20140106
  2. ETOPOSIDE (ETOPOSIDE) [Suspect]
     Indication: HODGKIN^S DISEASE
     Route: 042
     Dates: start: 20130924, end: 20140109
  3. CYCLOPHOSPHAMIDE (CYCLOPHOSPHAMIDE) [Suspect]
     Indication: HODGKIN^S DISEASE
     Route: 042
     Dates: start: 20130924, end: 20140107
  4. DOXORUBICIN (DOXORUBICIN) (DOXORUBICIN) [Suspect]
     Indication: HODGKIN^S DISEASE
     Route: 042
     Dates: start: 20130924, end: 20140107
  5. DACARBAZINE [Suspect]
     Indication: HODGKIN^S DISEASE
     Route: 048
     Dates: start: 20130925, end: 20140107
  6. DEXAMETHASONE (DEXAMETHASONE) [Suspect]
     Indication: HODGKIN^S DISEASE
     Route: 048
     Dates: start: 20130924, end: 20140110

REACTIONS (6)
  - Packed red blood cell transfusion [None]
  - Platelet transfusion [None]
  - Tachycardia [None]
  - Asthenia [None]
  - Thrombocytopenia [None]
  - Anaemia [None]
